FAERS Safety Report 9041627 (Version 1)
Quarter: 2013Q1

REPORT INFORMATION
  Report Type: Report from Study
  Country: US (occurrence: US)
  Receive Date: 20130129
  Receipt Date: 20130129
  Transmission Date: 20140127
  Serious: No
  Sender: FDA-Public Use
  Company Number: US-ABBOTT-12P-163-0900367-00

PATIENT
  Age: 33 Year
  Sex: Male

DRUGS (4)
  1. HUMIRA [Suspect]
     Indication: PSORIASIS
     Dosage: 80 MG 28 JAN 2012
     Dates: start: 20120128
  2. CLOBETASOL [Concomitant]
     Indication: PSORIASIS
     Dosage: APPLY TO AFFECTED AREA DAILY
  3. CLOBETASOL [Concomitant]
     Dosage: APPLY TO SCALP EVERY OTHER DAY
  4. CLOBETASOL [Concomitant]
     Indication: PSORIASIS
     Dosage: APPLY TO SCALP QOD

REACTIONS (4)
  - Cough [Not Recovered/Not Resolved]
  - Nasopharyngitis [Not Recovered/Not Resolved]
  - Oropharyngeal pain [Not Recovered/Not Resolved]
  - Rhinorrhoea [Not Recovered/Not Resolved]
